FAERS Safety Report 4628127-X (Version None)
Quarter: 2005Q2

REPORT INFORMATION
  Report Type: 
  Country: None (occurrence: None)
  Receive Date: 20050406
  Receipt Date: 20050331
  Transmission Date: 20051028
  Serious: Yes (Death)
  Sender: FDA-Public Use
  Company Number: GB-GLAXOSMITHKLINE-B0376397A

PATIENT
  Age: 82 Year

DRUGS (6)
  1. AMOXICILLIN [Suspect]
     Route: 065
  2. CLARITHROMYCIN [Suspect]
     Route: 065
  3. WARFARIN SODIUM [Suspect]
     Dosage: 2.8MG UNKNOWN
     Route: 048
  4. SERTRALINE [Suspect]
     Indication: DEPRESSION
     Dosage: 50MG PER DAY
     Route: 048
  5. DIGOXIN [Concomitant]
     Indication: ATRIAL FIBRILLATION
     Dosage: 125MCG PER DAY
     Route: 048
  6. ATENOLOL [Concomitant]
     Indication: ATRIAL FIBRILLATION
     Dosage: 50MG PER DAY
     Route: 048

REACTIONS (3)
  - DRUG INTERACTION [None]
  - INTERNATIONAL NORMALISED RATIO INCREASED [None]
  - SUDDEN DEATH [None]
